FAERS Safety Report 13975940 (Version 2)
Quarter: 2017Q4

REPORT INFORMATION
  Report Type: Report from Study
  Country: US (occurrence: US)
  Receive Date: 20170915
  Receipt Date: 20171024
  Transmission Date: 20180321
  Serious: Yes (Hospitalization)
  Sender: FDA-Public Use
  Company Number: US-GILEAD-2017-0293607

PATIENT
  Age: 49 Year
  Sex: Male
  Weight: 92.52 kg

DRUGS (21)
  1. AMBRISENTAN [Suspect]
     Active Substance: AMBRISENTAN
     Indication: PULMONARY HYPERTENSION
     Dosage: 5 MG, UNK
     Route: 048
     Dates: start: 20170330
  2. PAXIL [Concomitant]
     Active Substance: PAROXETINE HYDROCHLORIDE
  3. FLEXERIL [Concomitant]
     Active Substance: CYCLOBENZAPRINE HYDROCHLORIDE
  4. HYDROCORTISONE 1% IN ABSORBASE [Concomitant]
     Active Substance: HYDROCORTISONE
  5. RETROVIR [Concomitant]
     Active Substance: ZIDOVUDINE
  6. COREG [Concomitant]
     Active Substance: CARVEDILOL
  7. ATARAX [Concomitant]
     Active Substance: HYDROXYZINE HYDROCHLORIDE
  8. NEURONTIN [Concomitant]
     Active Substance: GABAPENTIN
  9. VITAMIN D                          /00107901/ [Concomitant]
     Active Substance: ERGOCALCIFEROL
  10. XANAX [Concomitant]
     Active Substance: ALPRAZOLAM
  11. INTELENCE [Concomitant]
     Active Substance: ETRAVIRINE
  12. ISENTRESS [Concomitant]
     Active Substance: RALTEGRAVIR POTASSIUM
  13. PROVENTIL HFA                      /00139501/ [Concomitant]
  14. AVAPRO [Concomitant]
     Active Substance: IRBESARTAN
  15. VENTOLIN [Concomitant]
     Active Substance: ALBUTEROL SULFATE
  16. BACTRIM [Concomitant]
     Active Substance: SULFAMETHOXAZOLE\TRIMETHOPRIM
  17. ZIAGEN [Concomitant]
     Active Substance: ABACAVIR SULFATE
  18. SYMBICORT [Concomitant]
     Active Substance: BUDESONIDE\FORMOTEROL FUMARATE DIHYDRATE
  19. NORCO [Concomitant]
     Active Substance: ACETAMINOPHEN\HYDROCODONE BITARTRATE
  20. DIPROLENE AF [Concomitant]
     Active Substance: BETAMETHASONE DIPROPIONATE
  21. LINZESS [Concomitant]
     Active Substance: LINACLOTIDE

REACTIONS (2)
  - Hypoaesthesia [Recovering/Resolving]
  - Hypotension [Recovering/Resolving]
